FAERS Safety Report 7999693-1 (Version None)
Quarter: 2011Q4

REPORT INFORMATION
  Report Type: 
  Country: None (occurrence: None)
  Receive Date: 20111221
  Receipt Date: 20111212
  Transmission Date: 20120403
  Serious: Yes (Other)
  Sender: FDA-Public Use
  Company Number: DE-ASTRAZENECA-2011SE75524

PATIENT
  Age: 67 Year
  Sex: Male

DRUGS (1)
  1. SEROQUEL XR [Suspect]
     Route: 048

REACTIONS (7)
  - CATARACT [None]
  - DIABETES MELLITUS [None]
  - APHASIA [None]
  - AMNESIA [None]
  - MENTAL IMPAIRMENT [None]
  - DYSPHAGIA [None]
  - LIVER INJURY [None]
